FAERS Safety Report 8368889-1 (Version None)
Quarter: 2012Q2

REPORT INFORMATION
  Report Type: 
  Country: None (occurrence: None)
  Receive Date: 20120516
  Receipt Date: 20120507
  Transmission Date: 20120825
  Serious: Yes (Hospitalization)
  Sender: FDA-Public Use
  Company Number: 2012HGS-003512

PATIENT
  Age: 45 Year
  Sex: Female
  Weight: 119.7496 kg

DRUGS (6)
  1. HYDROXYCHLOROQUINE (HYDROXYCHLOROQUINE SULFATE) (HYDROXYCHLOROQUINE SU [Concomitant]
  2. PREDNISONE [Concomitant]
  3. BENLYSTA [Suspect]
  4. AZATHIOPRINE (AZATHIOPRINE) (AZATHIOPRINE) [Concomitant]
  5. IBUPROFEN TABLETS [Concomitant]
  6. BENLYSTA [Suspect]
     Indication: SYSTEMIC LUPUS ERYTHEMATOSUS
     Dosage: 1 IN 28 D, INTRAVENOUS DRIP
     Route: 041
     Dates: start: 20110812

REACTIONS (10)
  - MUSCULAR WEAKNESS [None]
  - PANIC ATTACK [None]
  - WEANING FAILURE [None]
  - DIPLOPIA [None]
  - ANXIETY [None]
  - VASCULITIS [None]
  - OSTEONECROSIS [None]
  - SKIN ULCER [None]
  - DYSPNOEA [None]
  - PLEURISY [None]
